FAERS Safety Report 12897983 (Version 2)
Quarter: 2017Q1

REPORT INFORMATION
  Report Type: Spontaneous
  Country: JP (occurrence: JP)
  Receive Date: 20161031
  Receipt Date: 20170227
  Transmission Date: 20170428
  Serious: Yes (Hospitalization, Other)
  Sender: FDA-Public Use
  Company Number: JP-BAYER-2016-202133

PATIENT
  Age: 79 Year
  Sex: Male
  Weight: 75.4 kg

DRUGS (4)
  1. BAYASPIRIN 100 MG [Suspect]
     Active Substance: ASPIRIN
     Indication: MYOCARDIAL INFARCTION
     Dosage: 100 MG, UNK
     Route: 048
     Dates: start: 200605, end: 20151031
  2. PLAVIX [Suspect]
     Active Substance: CLOPIDOGREL BISULFATE
     Indication: CEREBRAL INFARCTION
  3. PLAVIX [Suspect]
     Active Substance: CLOPIDOGREL BISULFATE
     Indication: MYOCARDIAL INFARCTION
     Dosage: 75 MG, QD
     Route: 048
     Dates: start: 200605, end: 20151031
  4. BAYASPIRIN 100 MG [Suspect]
     Active Substance: ASPIRIN
     Indication: CEREBRAL INFARCTION
     Dosage: 100 MG, UNK
     Route: 048
     Dates: start: 20151208

REACTIONS (6)
  - Labelled drug-drug interaction medication error [None]
  - Hepatic function abnormal [Recovered/Resolved]
  - Hepatic cyst infection [Recovered/Resolved]
  - Haemorrhagic hepatic cyst [Recovered/Resolved]
  - Hepatitis [Recovered/Resolved]
  - Anaemia [None]

NARRATIVE: CASE EVENT DATE: 20150528
